FAERS Safety Report 15457698 (Version 1)
Quarter: 2018Q4

REPORT INFORMATION
  Report Type: Spontaneous
  Country: US (occurrence: US)
  Receive Date: 20181003
  Receipt Date: 20181003
  Transmission Date: 20190204
  Serious: Yes (Other)
  Sender: FDA-Public Use
  Company Number: US-009507513-1809USA009031

PATIENT
  Sex: Male

DRUGS (3)
  1. WARFARIN [Concomitant]
     Active Substance: WARFARIN
  2. CUBICIN [Suspect]
     Active Substance: DAPTOMYCIN
     Indication: STAPHYLOCOCCAL INFECTION
     Dosage: 10 MG/KG QD (1150 MG DAILY FOR FIRST 5 DAYS, THEN 1000 MG DAILY FOR 7 DAYS)
  3. CUBICIN [Suspect]
     Active Substance: DAPTOMYCIN
     Dosage: 1150 FOR MG DAILY FOR FIRST 5 DAYS, THEN 1000 MG DAILY FOR 7 DAYS

REACTIONS (2)
  - Drug-induced liver injury [Recovered/Resolved]
  - Hepatotoxicity [Recovered/Resolved]
